FAERS Safety Report 24051557 (Version 1)
Quarter: 2024Q3

REPORT INFORMATION
  Report Type: Spontaneous
  Country: IT (occurrence: IT)
  Receive Date: 20240704
  Receipt Date: 20240704
  Transmission Date: 20241016
  Serious: Yes (Hospitalization)
  Sender: PFIZER
  Company Number: IT-MLMSERVICE-20240613-PI080629-00232-2

PATIENT
  Age: 50 Year
  Sex: Male

DRUGS (15)
  1. METHYLPREDNISOLONE SODIUM SUCCINATE [Suspect]
     Active Substance: METHYLPREDNISOLONE SODIUM SUCCINATE
     Indication: Immunosuppressant drug therapy
     Dosage: 500 MG, 1X/DAY (D0-D2)
     Route: 042
  2. METHYLPREDNISOLONE SODIUM SUCCINATE [Suspect]
     Active Substance: METHYLPREDNISOLONE SODIUM SUCCINATE
     Dosage: 500 MG, 1X/DAY (D6-D10)
  3. METHYLPREDNISOLONE SODIUM SUCCINATE [Suspect]
     Active Substance: METHYLPREDNISOLONE SODIUM SUCCINATE
     Dosage: 500 MG, 1X/DAY (D15-D18)
     Route: 042
  4. TACROLIMUS [Suspect]
     Active Substance: TACROLIMUS
     Indication: Immunosuppressant drug therapy
     Dosage: UNK (STANDARD-RELEASE, ADJUSTED TO ACHIEVE A TROUGH LEVEL OF 12-5 NG/ML DURING THE FIRST MONTH)
     Route: 048
  5. TACROLIMUS [Suspect]
     Active Substance: TACROLIMUS
     Dosage: UNK (10-12 NG/ML THEREAFTER)
     Route: 048
  6. ECULIZUMAB [Suspect]
     Active Substance: ECULIZUMAB
     Indication: Transplant rejection
     Dosage: 900 MG, 1X/DAY (ON DAY 18, ANOTHER SHOT)
     Route: 042
  7. ECULIZUMAB [Suspect]
     Active Substance: ECULIZUMAB
     Dosage: 900 MG, 1X/DAY (D0)
     Route: 042
  8. MYCOPHENOLATE MOFETIL [Suspect]
     Active Substance: MYCOPHENOLATE MOFETIL
     Indication: Immunosuppressant drug therapy
     Dosage: POST-OPERATIVE DAY 5, BETWEEN 1000 MG AND 2000 MG A DAY (TOTAL DOSE)
     Route: 048
  9. MYCOPHENOLATE MOFETIL [Suspect]
     Active Substance: MYCOPHENOLATE MOFETIL
     Dosage: POST-OPERATIVE DAY 5, BETWEEN 1000 MG AND 2000 MG A DAY (TOTAL DOSE)
     Route: 048
  10. PREDNISONE [Suspect]
     Active Substance: PREDNISONE
     Indication: Immunosuppressant drug therapy
     Dosage: 20 MG, 1X/DAY (D3-D14)(PROGRESSIVELY TAPERED TO 5 MG A DAY AFTER TWO MONTHS OF FOLLOW-UP)
  11. PREDNISONE [Suspect]
     Active Substance: PREDNISONE
     Dosage: 20 MG, 1X/DAY (D19-D30)
  12. OBINUTUZUMAB [Suspect]
     Active Substance: OBINUTUZUMAB
     Indication: Transplant rejection
     Dosage: 1000 MG, 1X/DAY (D21)
  13. LAPINE T-LYMPHOCYTE IMMUNE GLOBULIN [Suspect]
     Active Substance: LAPINE T-LYMPHOCYTE IMMUNE GLOBULIN
     Indication: Immunosuppressant drug therapy
     Dosage: 5 MG/KG (5 MG/KG TOTAL DOSE D0-D4)
  14. HUMAN IMMUNOGLOBULIN G [Suspect]
     Active Substance: HUMAN IMMUNOGLOBULIN G
     Indication: Transplant rejection
     Dosage: 2000 MG/KG (IVIG 2 G/KG TOTAL DOSE (BETWEEN DAY 5 AND 12).)
     Route: 042
  15. HUMAN IMMUNOGLOBULIN G [Suspect]
     Active Substance: HUMAN IMMUNOGLOBULIN G
     Dosage: 2000 MG/KG (2 G/KG TOTAL-DOSE ON DAY 15, 16, AND 17)
     Route: 042

REACTIONS (2)
  - Organising pneumonia [Unknown]
  - COVID-19 [Unknown]
